FAERS Safety Report 13148803 (Version 1)
Quarter: 2017Q1

REPORT INFORMATION
  Report Type: Spontaneous
  Country: US (occurrence: US)
  Receive Date: 20170125
  Receipt Date: 20170125
  Transmission Date: 20170428
  Serious: No
  Sender: FDA-Public Use
  Company Number: US-PFIZER INC-2017033371

PATIENT
  Age: 27 Year
  Sex: Female
  Weight: 113 kg

DRUGS (3)
  1. NATURAL BOUNTY [Concomitant]
     Indication: HAIR DISORDER
     Dosage: UNK
  2. NATURAL BOUNTY [Concomitant]
     Indication: NAIL DISORDER
  3. ADVIL [Suspect]
     Active Substance: IBUPROFEN
     Indication: HEADACHE
     Dosage: 400 MG; 200MG TWO TABLETS BY MOUTH
     Route: 048
     Dates: start: 20170121, end: 20170121

REACTIONS (4)
  - Back pain [Recovering/Resolving]
  - Dysstasia [Unknown]
  - Condition aggravated [Not Recovered/Not Resolved]
  - Abdominal pain upper [Not Recovered/Not Resolved]

NARRATIVE: CASE EVENT DATE: 201701
